FAERS Safety Report 8500050-X (Version None)
Quarter: 2012Q3

REPORT INFORMATION
  Report Type: 
  Country: None (occurrence: None)
  Receive Date: 20120710
  Receipt Date: 20120703
  Transmission Date: 20120928
  Serious: No
  Sender: FDA-Public Use
  Company Number: US-BAYER-2012-067407

PATIENT
  Sex: Female

DRUGS (2)
  1. BETASERON [Suspect]
     Dosage: 0.25 MG, QOD
     Route: 058
  2. ANTIDEPRESSANTS [Concomitant]

REACTIONS (4)
  - DEPRESSION [None]
  - STRESS [None]
  - DEPRESSED MOOD [None]
  - ANHEDONIA [None]
